FAERS Safety Report 12069551 (Version 1)
Quarter: 2016Q1

REPORT INFORMATION
  Report Type: Spontaneous
  Country: US (occurrence: None)
  Receive Date: 20160211
  Receipt Date: 20160211
  Transmission Date: 20160526
  Serious: Yes (Other)
  Sender: FDA-Public Use
  Company Number: None

PATIENT
  Age: 60 Year
  Sex: Male
  Weight: 97.52 kg

DRUGS (11)
  1. HYDROCODONE/APAP 10-324 GENERIC FOR NORCO 10-325 CARACO [Suspect]
     Active Substance: ACETAMINOPHEN\HYDROCODONE BITARTRATE
     Indication: INTERVERTEBRAL DISC PROTRUSION
     Route: 048
  2. KIRKLAND GLUCOSAMINE 1500MG+CHONDROITIN [Concomitant]
  3. NATURE MADE VITAMIN B-12 [Concomitant]
  4. WELL-BUTRIN [Concomitant]
  5. KIRKLAND GLUCOSAMINE HCL 1500MG+MSM1500MG [Concomitant]
  6. SIMVASTATIN. [Concomitant]
     Active Substance: SIMVASTATIN
  7. CARASOPRIDOL [Concomitant]
  8. VITAMIN K2 [Concomitant]
     Active Substance: MENAQUINONE 6
  9. KIRKLAND DAILY MULTI VITAMIN SUPPLEMENT [Concomitant]
  10. NATURE MADE SUPER B-COMPLEX [Concomitant]
  11. GENERIC LEXAPRO [Concomitant]
     Active Substance: ESCITALOPRAM OXALATE

REACTIONS (6)
  - Nausea [None]
  - Drug ineffective [None]
  - Abdominal discomfort [None]
  - Product substitution issue [None]
  - Muscle spasms [None]
  - Diarrhoea [None]

NARRATIVE: CASE EVENT DATE: 20160204
